FAERS Safety Report 7354866-6 (Version None)
Quarter: 2011Q1

REPORT INFORMATION
  Report Type: 
  Country: None (occurrence: None)
  Receive Date: 20110307
  Receipt Date: 20110302
  Transmission Date: 20110831
  Serious: Yes (Hospitalization)
  Sender: FDA-Public Use
  Company Number: KV201100043

PATIENT
  Age: 25 Year
  Sex: Female

DRUGS (1)
  1. MORPHINE SULFATE [Suspect]
     Indication: PRODUCT USED FOR UNKNOWN INDICATION
     Dosage: 150 MG, SINGLE, INTRATHECAL
     Route: 037

REACTIONS (2)
  - MENINGITIS VIRAL [None]
  - POST PROCEDURAL COMPLICATION [None]
